FAERS Safety Report 9472826 (Version 2)
Quarter: 2013Q3

REPORT INFORMATION
  Report Type: Report from Study
  Country: AR (occurrence: AR)
  Receive Date: 20130823
  Receipt Date: 20130823
  Transmission Date: 20140515
  Serious: Yes (Hospitalization)
  Sender: FDA-Public Use
  Company Number: PHHO2010AR14887

PATIENT
  Age: 66 Year
  Sex: Male
  Weight: 80 kg

DRUGS (8)
  1. PLACEBO [Suspect]
     Indication: CORONARY ARTERY DISEASE
     Dosage: UNK
     Route: 048
     Dates: start: 20091204
  2. ALISKIREN [Suspect]
     Indication: CORONARY ARTERY DISEASE
     Dosage: 150 MG, UNK
  3. METFORMIN [Concomitant]
     Indication: DIABETES MELLITUS
  4. GLIMEPIRIDE [Concomitant]
     Indication: DIABETES MELLITUS
  5. ENALAPRIL [Concomitant]
     Indication: DIABETES MELLITUS
  6. CARVEDILOL [Concomitant]
     Indication: ANGINA UNSTABLE
  7. ATORVASTATIN [Concomitant]
     Indication: DYSLIPIDAEMIA
  8. ACETYLSALICYLIC ACID [Concomitant]
     Indication: ANGINA UNSTABLE

REACTIONS (3)
  - Angina unstable [Recovered/Resolved]
  - Coronary artery stenosis [Unknown]
  - Disease progression [Not Recovered/Not Resolved]
